FAERS Safety Report 6984426-8 (Version None)
Quarter: 2010Q3

REPORT INFORMATION
  Report Type: 
  Country: None (occurrence: None)
  Receive Date: 20100915
  Receipt Date: 20100903
  Transmission Date: 20110219
  Serious: Yes (Hospitalization)
  Sender: FDA-Public Use
  Company Number: US-ELI_LILLY_AND_COMPANY-US201008001238

PATIENT
  Age: 81 Year
  Sex: Female
  Weight: 53.515 kg

DRUGS (16)
  1. ADCIRCA [Suspect]
     Indication: PULMONARY ARTERIAL HYPERTENSION
     Dosage: 20 MG, DAILY (1/D)
     Route: 065
     Dates: start: 20100201
  2. ADCIRCA [Suspect]
     Dosage: 10 MG, DAILY (1/D)
     Route: 065
     Dates: start: 20100201
  3. ADCIRCA [Suspect]
     Dosage: 40 MG, DAILY (1/D)
     Route: 065
     Dates: start: 20100201
  4. LASIX [Concomitant]
  5. HYZAAR [Concomitant]
     Dates: end: 20100816
  6. VERELAN PM [Concomitant]
     Dosage: UNK, EACH EVENING
     Dates: end: 20100816
  7. HYDRALAZINE HCL [Concomitant]
     Dosage: 10 MG, UNK
  8. HYDROCHLOROTHIAZIDE [Concomitant]
     Dosage: 50 MG, UNK
     Dates: end: 20100816
  9. CARVEDILOL [Concomitant]
     Dosage: 1.562 MG, UNK
     Dates: end: 20100816
  10. DIGOXIN [Concomitant]
     Dosage: 0.125 MG, DAILY (1/D)
     Dates: end: 20100816
  11. SIMVASTATIN [Concomitant]
     Dosage: 5 MG, DAILY (1/D)
     Dates: end: 20100816
  12. COUMADIN [Concomitant]
     Dosage: 3 MG, DAILY (1/D)
     Dates: end: 20100816
  13. PREVACID [Concomitant]
     Dosage: 30 MG, 2/D
     Dates: end: 20100816
  14. ZANTAC [Concomitant]
     Dosage: 300 MG, DAILY (1/D)
     Dates: end: 20100816
  15. FOSAMAX [Concomitant]
     Dosage: 70 MG, UNK
     Dates: end: 20100816
  16. KLOR-CON [Concomitant]
     Dosage: 10 MEQ, DAILY (1/D)
     Dates: end: 20100816

REACTIONS (11)
  - BLOOD PRESSURE FLUCTUATION [None]
  - BRAIN NATRIURETIC PEPTIDE INCREASED [None]
  - CHEST PAIN [None]
  - DRUG INTERACTION [None]
  - HYPOAESTHESIA [None]
  - HYPOAESTHESIA ORAL [None]
  - LABILE BLOOD PRESSURE [None]
  - PARAESTHESIA [None]
  - SLEEP DISORDER [None]
  - SOMNOLENCE [None]
  - WRONG TECHNIQUE IN DRUG USAGE PROCESS [None]
